FAERS Safety Report 9548772 (Version 1)
Quarter: 2013Q2

REPORT INFORMATION
  Report Type: Spontaneous
  Country: US (occurrence: None)
  Receive Date: 20130607
  Receipt Date: 20130607
  Transmission Date: 20140414
  Serious: Yes (Hospitalization)
  Sender: FDA-Public Use
  Company Number: 086565

PATIENT
  Age: 80 Year
  Sex: Female

DRUGS (1)
  1. ROTIGOTINE [Suspect]
     Indication: RESTLESS LEGS SYNDROME

REACTIONS (4)
  - Renal failure [None]
  - Dehydration [None]
  - Nausea [None]
  - Vomiting [None]
